FAERS Safety Report 8479292-8 (Version None)
Quarter: 2012Q2

REPORT INFORMATION
  Report Type: 
  Country: None (occurrence: None)
  Receive Date: 20120629
  Receipt Date: 20120619
  Transmission Date: 20120825
  Serious: Yes (Life-Threatening, Hospitalization)
  Sender: FDA-Public Use
  Company Number: FR-GLAXOSMITHKLINE-B0781917A

PATIENT
  Sex: Female
  Weight: 49.9 kg

DRUGS (5)
  1. ARIXTRA [Suspect]
     Indication: OEDEMA PERIPHERAL
     Dosage: 2.5MG PER DAY
     Route: 058
     Dates: start: 20120106, end: 20120112
  2. OMEPRAZOLE [Concomitant]
     Route: 065
  3. TERCIAN [Concomitant]
  4. PLAVIX [Concomitant]
     Route: 065
  5. ANAFRANIL [Concomitant]
     Route: 065

REACTIONS (2)
  - SUBDURAL HAEMATOMA [None]
  - OFF LABEL USE [None]
